FAERS Safety Report 17565862 (Version 1)
Quarter: 2020Q1

REPORT INFORMATION
  Report Type: Spontaneous
  Country: AT (occurrence: AT)
  Receive Date: 20200320
  Receipt Date: 20200320
  Transmission Date: 20200409
  Serious: Yes (Hospitalization)
  Sender: FDA-Public Use
  Company Number: AT-PFIZER INC-2020119799

PATIENT
  Age: 55 Year
  Sex: Female

DRUGS (8)
  1. HYDAL [Suspect]
     Active Substance: HYDROMORPHONE HYDROCHLORIDE
     Dosage: 4 MG, UNK
     Route: 065
  2. EUTHYROX [Suspect]
     Active Substance: LEVOTHYROXINE SODIUM
     Dosage: UNK
     Route: 065
  3. URSOFALK [Suspect]
     Active Substance: URSODIOL
     Dosage: UNK
     Route: 065
  4. HYDAL [Suspect]
     Active Substance: HYDROMORPHONE HYDROCHLORIDE
     Dosage: 1.3 MG, UNK
     Route: 065
  5. ENVARSUS XR [Suspect]
     Active Substance: TACROLIMUS
     Dosage: UNK
     Route: 065
  6. APREDNISLON [Suspect]
     Active Substance: PREDNISOLONE
     Dosage: 15 MILLIGRAM
     Route: 065
  7. PANTOLOC [Suspect]
     Active Substance: PANTOPRAZOLE SODIUM
     Dosage: UNK
     Route: 065
  8. LIDAPRIM [SULFAMETROLE;TRIMETHOPRIM] [Suspect]
     Active Substance: SULFAMETROLE\TRIMETHOPRIM
     Dosage: UNK UNK, 1/WEEK
     Route: 065

REACTIONS (1)
  - Arterial occlusive disease [Recovered/Resolved]
